FAERS Safety Report 18993643 (Version 1)
Quarter: 2021Q1

REPORT INFORMATION
  Report Type: Report from Study
  Country: US (occurrence: US)
  Receive Date: 20210310
  Receipt Date: 20210310
  Transmission Date: 20210420
  Serious: Yes (Other)
  Sender: FDA-Public Use
  Company Number: US-TAKEDA-2021TUS013610

PATIENT
  Sex: Female

DRUGS (1)
  1. VON WILLEBRAND FACTOR [Suspect]
     Active Substance: VON WILLEBRAND FACTOR HUMAN
     Indication: VON WILLEBRAND^S DISEASE
     Dosage: UNK
     Route: 042
     Dates: start: 202102

REACTIONS (2)
  - Fall [Unknown]
  - Haemorrhage [Unknown]
